FAERS Safety Report 24298408 (Version 1)
Quarter: 2024Q3

REPORT INFORMATION
  Report Type: Spontaneous
  Country: CA (occurrence: CA)
  Receive Date: 20240909
  Receipt Date: 20240909
  Transmission Date: 20241016
  Serious: Yes (Life-Threatening)
  Sender: PFIZER
  Company Number: CA-PFIZER INC-202400251706

PATIENT
  Age: 17 Year
  Sex: Male
  Weight: 188 kg

DRUGS (9)
  1. SIROLIMUS [Suspect]
     Active Substance: SIROLIMUS
     Indication: Bone marrow transplant
     Dosage: 5 MG, 1X/DAY
     Route: 048
  2. SIROLIMUS [Suspect]
     Active Substance: SIROLIMUS
     Dosage: 5 MG 3 EVERY 1 DAYS
     Route: 048
  3. ALEMTUZUMAB [Suspect]
     Active Substance: ALEMTUZUMAB
     Indication: Bone marrow transplant
     Dosage: 15 MG, 1X/DAY
     Route: 042
  4. CYCLOPHOSPHAMIDE [Suspect]
     Active Substance: CYCLOPHOSPHAMIDE
     Indication: Bone marrow transplant
     Dosage: 600 MG, 1X/DAY
     Route: 042
  5. FLUDARABINE [Suspect]
     Active Substance: FLUDARABINE PHOSPHATE
     Indication: Bone marrow transplant
     Dosage: 80 MG, 1X/DAY
     Route: 042
  6. AMOXICILLIN [Concomitant]
     Active Substance: AMOXICILLIN
  7. FAMOTIDINE [Concomitant]
     Active Substance: FAMOTIDINE
  8. ONDANSETRON [Concomitant]
     Active Substance: ONDANSETRON
  9. VALACYCLOVIR [Concomitant]
     Active Substance: VALACYCLOVIR HYDROCHLORIDE

REACTIONS (7)
  - Aplastic anaemia [Unknown]
  - Febrile neutropenia [Unknown]
  - Platelet count increased [Unknown]
  - Skin reaction [Unknown]
  - White blood cell count increased [Unknown]
  - Off label use [Unknown]
  - Off label use [Unknown]
